FAERS Safety Report 11865862 (Version 7)
Quarter: 2016Q3

REPORT INFORMATION
  Report Type: Report from Study
  Country: AR (occurrence: AR)
  Receive Date: 20151223
  Receipt Date: 20160713
  Transmission Date: 20161109
  Serious: Yes (Hospitalization, Other)
  Sender: FDA-Public Use
  Company Number: PHHY2015AR153135

PATIENT
  Age: 2 Year
  Sex: Male
  Weight: 10.8 kg

DRUGS (6)
  1. EXJADE [Suspect]
     Active Substance: DEFERASIROX
     Dosage: 0.5 DF (HALF TABLET OF 500 MG), QD
     Route: 065
  2. DESFERAL [Suspect]
     Active Substance: DEFEROXAMINE MESYLATE
     Indication: PRODUCT USED FOR UNKNOWN INDICATION
     Dosage: 1 DF, QW3 (MONDAYS, WEDNESDAYS AND FRIDAYS)
     Route: 065
  3. EXJADE [Suspect]
     Active Substance: DEFERASIROX
     Dosage: 25 MG/KG, QD (1 DF OF 250 MG DAILY)
     Route: 065
     Dates: end: 201511
  4. EXJADE [Suspect]
     Active Substance: DEFERASIROX
     Dosage: 0.5 DF, UNK (HALF TABLET OF 500 MG)
     Route: 065
     Dates: start: 201510
  5. EXJADE [Suspect]
     Active Substance: DEFERASIROX
     Dosage: 25 MG/KG, QD (1 DF OF 250 MG DAILY)
     Route: 065
     Dates: start: 201601
  6. EXJADE [Suspect]
     Active Substance: DEFERASIROX
     Indication: THALASSAEMIA BETA
     Dosage: 25 MG/KG, QD (1 DF OF 250 MG DAILY)
     Route: 065
     Dates: start: 20150511

REACTIONS (20)
  - Fungal infection [Unknown]
  - Arterial injury [Unknown]
  - Weight gain poor [Unknown]
  - Renal injury [Unknown]
  - Pyrexia [Recovering/Resolving]
  - Disease progression [Not Recovered/Not Resolved]
  - Respiratory tract congestion [Recovering/Resolving]
  - Feeding disorder [Recovering/Resolving]
  - Wrong technique in product usage process [Unknown]
  - Vomiting [Not Recovered/Not Resolved]
  - Dyspnoea [Recovering/Resolving]
  - Gastrointestinal disorder [Unknown]
  - Blood iron increased [Not Recovered/Not Resolved]
  - Off label use [Unknown]
  - Urinary tract infection [Recovering/Resolving]
  - Thalassaemia beta [Not Recovered/Not Resolved]
  - Cardiac siderosis [Not Recovered/Not Resolved]
  - Haemosiderosis [Not Recovered/Not Resolved]
  - General physical health deterioration [Not Recovered/Not Resolved]
  - Diarrhoea [Not Recovered/Not Resolved]

NARRATIVE: CASE EVENT DATE: 201510
